FAERS Safety Report 18071184 (Version 1)
Quarter: 2020Q3

REPORT INFORMATION
  Report Type: Spontaneous
  Country: US (occurrence: US)
  Receive Date: 20200725
  Receipt Date: 20200725
  Transmission Date: 20201103
  Serious: No
  Sender: FDA-Public Use
  Company Number: None

PATIENT
  Age: 44 Year
  Sex: Female
  Weight: 94.5 kg

DRUGS (7)
  1. FLUOXETINE [Concomitant]
     Active Substance: FLUOXETINE HYDROCHLORIDE
  2. PROTANDIM NRF2 [Concomitant]
  3. PROTANDIM NRF1 [Concomitant]
  4. PROBIO [Concomitant]
  5. OMEGA + [Concomitant]
  6. LIFEVANTAGE VITAMINS [Concomitant]
  7. ASSURED INSTANT HAND SANITIZER VITAMIN E AND ALOE [Suspect]
     Active Substance: ALCOHOL
     Indication: INFECTION PROPHYLAXIS
     Route: 061
     Dates: start: 20200312, end: 20200724

REACTIONS (1)
  - Headache [None]
